FAERS Safety Report 5883857-7 (Version None)
Quarter: 2008Q3

REPORT INFORMATION
  Report Type: 
  Country: None (occurrence: None)
  Receive Date: 20080915
  Receipt Date: 20080908
  Transmission Date: 20090109
  Serious: Yes (Hospitalization, Disabling)
  Sender: FDA-Public Use
  Company Number: DE-AVENTIS-200812391DE

PATIENT
  Age: 73 Year
  Sex: Male
  Weight: 94 kg

DRUGS (6)
  1. ENOXAPARIN SODIUM [Suspect]
     Indication: THROMBOSIS PROPHYLAXIS
     Dosage: DOSE: 2X0.35
     Route: 058
     Dates: start: 20070214, end: 20070221
  2. MARCUMAR [Concomitant]
     Indication: DRUG USE FOR UNKNOWN INDICATION
     Dosage: DOSE: NOT REPORTED
     Route: 048
     Dates: end: 20070101
  3. EMBOLEX [Concomitant]
     Indication: THROMBOSIS PROPHYLAXIS
     Dosage: DOSE: UNK
     Route: 058
     Dates: start: 20070101, end: 20070207
  4. EMBOLEX [Concomitant]
     Dosage: DOSE: 2X0,45
     Route: 058
     Dates: start: 20070208, end: 20070211
  5. HEPARIN [Concomitant]
     Indication: DRUG USE FOR UNKNOWN INDICATION
     Dosage: DOSE: NOT REPORTED
     Route: 042
     Dates: start: 20070212, end: 20070213
  6. HAES [Concomitant]
     Indication: DRUG USE FOR UNKNOWN INDICATION
     Dosage: DOSE: NOT REPORTED
     Route: 041
     Dates: start: 20070215, end: 20070221

REACTIONS (2)
  - CEREBROVASCULAR ACCIDENT [None]
  - COMA [None]
